FAERS Safety Report 16692536 (Version 1)
Quarter: 2019Q3

REPORT INFORMATION
  Report Type: Spontaneous
  Country: US (occurrence: US)
  Receive Date: 20190625
  Receipt Date: 20190625
  Transmission Date: 20191004
  Serious: No
  Sender: FDA-Public Use
  Company Number: None

PATIENT
  Sex: Male
  Weight: 57.5 kg

DRUGS (4)
  1. LOMUSTINE. [Suspect]
     Active Substance: LOMUSTINE
     Dates: end: 20110415
  2. CYCLOPHOSPHAMI [Concomitant]
     Active Substance: CYCLOPHOSPHAMIDE
     Dates: end: 20110602
  3. VINCRISTINE SULFATE. [Concomitant]
     Active Substance: VINCRISTINE SULFATE
  4. CISPLATIN. [Concomitant]
     Active Substance: CISPLATIN

REACTIONS (4)
  - Thrombocytopenia [None]
  - Neutropenia [None]
  - Viral infection [None]
  - Myelodysplastic syndrome [None]

NARRATIVE: CASE EVENT DATE: 20190515
